FAERS Safety Report 9113455 (Version 1)
Quarter: 2013Q1

REPORT INFORMATION
  Report Type: Spontaneous
  Country: US (occurrence: US)
  Receive Date: 20130128
  Receipt Date: 20130128
  Transmission Date: 20140127
  Serious: No
  Sender: FDA-Public Use
  Company Number: US-009507513-1301USA009786

PATIENT
  Sex: Male

DRUGS (2)
  1. DULERA [Suspect]
     Dosage: TWO PUFFS TWICE A DAY
     Route: 055
     Dates: start: 201201, end: 201201
  2. DULERA [Suspect]
     Dosage: TWO PUFFS TWICE A DAY
     Route: 055
     Dates: start: 201301

REACTIONS (3)
  - Rash [Recovered/Resolved]
  - Product quality issue [Unknown]
  - Drug dose omission [Unknown]
